FAERS Safety Report 15215776 (Version 1)
Quarter: 2018Q3

REPORT INFORMATION
  Report Type: Spontaneous
  Country: US (occurrence: US)
  Receive Date: 20180703
  Receipt Date: 20180703
  Transmission Date: 20181010
  Serious: Yes (Life-Threatening)
  Sender: FDA-Public Use
  Company Number: None

PATIENT
  Age: 78 Year
  Sex: Female
  Weight: 69.4 kg

DRUGS (1)
  1. DABIGATRAN [Suspect]
     Active Substance: DABIGATRAN
     Indication: ANTIPHOSPHOLIPID ANTIBODIES
     Route: 048

REACTIONS (2)
  - Haemorrhage intracranial [None]
  - Mental status changes [None]

NARRATIVE: CASE EVENT DATE: 20180703
